FAERS Safety Report 17497376 (Version 6)
Quarter: 2025Q2

REPORT INFORMATION
  Report Type: Spontaneous
  Country: PL (occurrence: PL)
  Receive Date: 20200304
  Receipt Date: 20250602
  Transmission Date: 20250716
  Serious: Yes (Life-Threatening, Hospitalization, Other)
  Sender: TAKEDA
  Company Number: PL-RECORDATI-2020000792

PATIENT
  Age: 52 Year
  Sex: Female

DRUGS (4)
  1. LANSOPRAZOLE [Interacting]
     Active Substance: LANSOPRAZOLE
     Indication: Gastrooesophageal reflux disease
     Dosage: 15 MILLIGRAM, QD
  2. METOPROLOL [Interacting]
     Active Substance: METOPROLOL
     Indication: Sinus tachycardia
     Dosage: 100 MILLIGRAM, QD
  3. METOCLOPRAMIDE [Interacting]
     Active Substance: METOCLOPRAMIDE
     Indication: Gastrooesophageal reflux disease
     Dosage: 30 MILLIGRAM, QD
  4. DULOXETINE [Interacting]
     Active Substance: DULOXETINE
     Indication: Generalised anxiety disorder
     Dosage: 30 MILLIGRAM, QD

REACTIONS (7)
  - Bradycardia [Unknown]
  - Syncope [Unknown]
  - Drug interaction [Unknown]
  - Off label use [Unknown]
  - Loss of consciousness [Unknown]
  - Sinus bradycardia [Unknown]
  - Illness [Unknown]
